FAERS Safety Report 6917951-6 (Version None)
Quarter: 2010Q3

REPORT INFORMATION
  Report Type: 
  Country: None (occurrence: None)
  Receive Date: 20100810
  Receipt Date: 20090907
  Transmission Date: 20110219
  Serious: Yes (Other)
  Sender: FDA-Public Use
  Company Number: GB-PFIZER INC-2009226184

PATIENT
  Sex: Female
  Weight: 53 kg

DRUGS (3)
  1. TOVIAZ [Suspect]
     Indication: INCONTINENCE
     Dosage: 8 MG, 1X/DAY
     Route: 048
     Dates: start: 20081001, end: 20090701
  2. TOPIRAMATE [Concomitant]
     Indication: MIGRAINE
     Dosage: 50 MG, 2X/DAY
     Route: 048
     Dates: start: 20080901, end: 20090701
  3. FEMATRIX [Concomitant]
     Dosage: 40 UG, 1X/DAY
     Route: 062
     Dates: start: 20000101

REACTIONS (5)
  - ABDOMINAL PAIN UPPER [None]
  - DECREASED APPETITE [None]
  - DRY MOUTH [None]
  - DYSPHAGIA [None]
  - WEIGHT DECREASED [None]
